FAERS Safety Report 16623217 (Version 3)
Quarter: 2020Q1

REPORT INFORMATION
  Report Type: Report from Study
  Country: JP (occurrence: JP)
  Receive Date: 20190723
  Receipt Date: 20200306
  Transmission Date: 20200409
  Serious: Yes (Hospitalization, Disabling, Other)
  Sender: FDA-Public Use
  Company Number: JP-INCYTE CORPORATION-2019IN007348

PATIENT

DRUGS (26)
  1. JAKAVI [Suspect]
     Active Substance: RUXOLITINIB
     Dosage: 35 MG (IN TWO DIVIDED DOSES), BID
     Route: 048
     Dates: start: 20180507, end: 20180520
  2. HYDREA [Concomitant]
     Active Substance: HYDROXYUREA
     Dosage: 1000 MG, UNK
     Route: 048
     Dates: start: 20181022, end: 20181104
  3. RED BLOOD CELLS [Concomitant]
     Active Substance: HUMAN RED BLOOD CELL
     Indication: PRIMARY MYELOFIBROSIS
     Dosage: UNK
     Route: 065
     Dates: start: 20180521
  4. JAKAVI [Suspect]
     Active Substance: RUXOLITINIB
     Dosage: 15 MG, BID
     Route: 048
     Dates: start: 20180115, end: 20180506
  5. HYDREA [Concomitant]
     Active Substance: HYDROXYUREA
     Dosage: 1000 MG, UNK
     Route: 048
     Dates: start: 20180628, end: 20180826
  6. PLATELETS [Concomitant]
     Active Substance: HUMAN PLATELET, ALLOGENIC
     Dosage: UNK (SOMETIMES TWICE A WEEK)
     Route: 065
     Dates: start: 20181116
  7. JAKAVI [Suspect]
     Active Substance: RUXOLITINIB
     Dosage: 25 MG (IN TWO DIVIDED DOSES), BID
     Route: 048
     Dates: start: 20171204, end: 20180114
  8. JAKAVI [Suspect]
     Active Substance: RUXOLITINIB
     Dosage: 20 MG, BID
     Route: 048
     Dates: start: 20180521
  9. HYDREA [Concomitant]
     Active Substance: HYDROXYUREA
     Dosage: 1000 MG, UNK
     Route: 048
     Dates: start: 20180925, end: 20181014
  10. HYDREA [Concomitant]
     Active Substance: HYDROXYUREA
     Dosage: 1500 MG, UNK
     Route: 048
     Dates: start: 20181015, end: 20181021
  11. HYDREA [Concomitant]
     Active Substance: HYDROXYUREA
     Dosage: 500 MG, UNK
     Route: 048
     Dates: start: 20181105
  12. JAKAVI [Suspect]
     Active Substance: RUXOLITINIB
     Dosage: 10 MG, BID
     Route: 048
     Dates: start: 20170123, end: 20170205
  13. JAKAVI [Suspect]
     Active Substance: RUXOLITINIB
     Dosage: 10 MG, BID
     Route: 048
     Dates: start: 20170213, end: 20170806
  14. HYDREA [Concomitant]
     Active Substance: HYDROXYUREA
     Dosage: 1500 MG, UNK
     Route: 048
     Dates: start: 20180611, end: 20180617
  15. HYDREA [Concomitant]
     Active Substance: HYDROXYUREA
     Dosage: 500 MG, UNK
     Route: 048
     Dates: start: 20180622, end: 20180627
  16. RED BLOOD CELLS [Concomitant]
     Active Substance: HUMAN RED BLOOD CELL
     Dosage: UNK (SOMETIMES ONCE A WEEK)
     Route: 065
     Dates: start: 20181116
  17. PLATELETS [Concomitant]
     Active Substance: HUMAN PLATELET, ALLOGENIC
     Dosage: UNK, PRN
     Route: 065
  18. JAKAVI [Suspect]
     Active Substance: RUXOLITINIB
     Dosage: 5 MG, BID
     Route: 048
     Dates: start: 20170206, end: 20170212
  19. JAKAVI [Suspect]
     Active Substance: RUXOLITINIB
     Dosage: 15 MG, BID
     Route: 048
     Dates: start: 20170807, end: 20171203
  20. JAKAVI [Suspect]
     Active Substance: RUXOLITINIB
     Indication: PRIMARY MYELOFIBROSIS
     Dosage: 5 MG, QD
     Route: 048
     Dates: start: 20161116, end: 20170115
  21. HYDREA [Concomitant]
     Active Substance: HYDROXYUREA
     Dosage: 1000 MG, UNK
     Route: 048
     Dates: start: 20180618, end: 20180621
  22. PLATELETS [Concomitant]
     Active Substance: HUMAN PLATELET, ALLOGENIC
     Indication: PRIMARY MYELOFIBROSIS
     Dosage: UNK
     Route: 065
     Dates: start: 20180717
  23. JAKAVI [Suspect]
     Active Substance: RUXOLITINIB
     Dosage: 5 MG, BID
     Route: 048
     Dates: start: 20170116, end: 20170122
  24. RED BLOOD CELLS [Concomitant]
     Active Substance: HUMAN RED BLOOD CELL
     Dosage: UNK, PRN
     Route: 065
  25. HYDREA [Concomitant]
     Active Substance: HYDROXYUREA
     Indication: PRIMARY MYELOFIBROSIS
     Dosage: 500 MG, UNK
     Route: 048
     Dates: start: 20180409, end: 20180610
  26. HYDREA [Concomitant]
     Active Substance: HYDROXYUREA
     Dosage: 500 MG, UNK
     Route: 048
     Dates: start: 20180903, end: 20180924

REACTIONS (16)
  - Abdominal pain [Unknown]
  - Bone marrow failure [Not Recovered/Not Resolved]
  - Cerebral infarction [Recovering/Resolving]
  - Pneumonia [Not Recovered/Not Resolved]
  - Primary myelofibrosis [Not Recovered/Not Resolved]
  - Herpes zoster [Recovered/Resolved]
  - Lung neoplasm malignant [Recovered/Resolved with Sequelae]
  - Gamma-glutamyltransferase increased [Recovering/Resolving]
  - Haemoglobin decreased [Unknown]
  - Platelet count decreased [Not Recovered/Not Resolved]
  - Influenza [Recovered/Resolved]
  - Anaemia [Not Recovered/Not Resolved]
  - Gamma-glutamyltransferase increased [Recovered/Resolved]
  - Platelet count decreased [Recovering/Resolving]
  - Metastases to lymph nodes [Recovered/Resolved with Sequelae]
  - Metastases to pleura [Recovered/Resolved with Sequelae]

NARRATIVE: CASE EVENT DATE: 20170104
